FAERS Safety Report 10272996 (Version 1)
Quarter: 2014Q2

REPORT INFORMATION
  Report Type: Spontaneous
  Country: GB (occurrence: None)
  Receive Date: 20140630
  Receipt Date: 20140630
  Transmission Date: 20141212
  Serious: Yes (Life-Threatening)
  Sender: FDA-Public Use
  Company Number: FK201402499

PATIENT
  Age: 63 Year
  Sex: Female
  Weight: 97.2 kg

DRUGS (14)
  1. PIPERACILLIN / TAZOBACTAM [Suspect]
     Indication: LOWER RESPIRATORY TRACT INFECTION
     Route: 042
     Dates: start: 20140610, end: 20140610
  2. ALENDRONATE (ALENDRONATE SODIUM) [Concomitant]
  3. BENDROFLUMETHIAZIDE (BENDROFLUMETHIAZIDE) [Concomitant]
  4. CALCEOS (LEKOVIT CA) [Concomitant]
  5. GABAPENTIN (GABAPENTIN) [Concomitant]
  6. HARTMANN^S SOLUTION (RINGER-LACTATE) [Concomitant]
  7. ACTRAPID [Concomitant]
  8. MORPHINE (MORPHINE) [Concomitant]
  9. OXYCONTIN (OXYCODONE HYDROCHLORIDE) [Concomitant]
  10. PARACETAMOL (PARACETAMOL) [Concomitant]
  11. PERINDOPRIL (PERINDOPRIL) [Concomitant]
  12. SALBUTAMOL (SALBUTAMOL) [Concomitant]
  13. SERETIDE (SERETIDE) [Concomitant]
  14. TIOTROPIUM (TIOTROPIUM) (TIOTROPIUM) [Concomitant]

REACTIONS (2)
  - Bradycardia [None]
  - Eye movement disorder [None]
